FAERS Safety Report 17606867 (Version 2)
Quarter: 2020Q2

REPORT INFORMATION
  Report Type: Spontaneous
  Country: GR (occurrence: GR)
  Receive Date: 20200331
  Receipt Date: 20200618
  Transmission Date: 20200713
  Serious: Yes (Death, Hospitalization, Other)
  Sender: FDA-Public Use
  Company Number: NVSC2020GR088407

PATIENT
  Age: 75 Year
  Sex: Male

DRUGS (3)
  1. CYCLOSPORINE. [Suspect]
     Active Substance: CYCLOSPORINE
     Indication: MEMBRANOUS-LIKE GLOMERULOPATHY WITH MASKED IGG-KAPPA DEPOSITS
     Dosage: UNK
     Route: 065
  2. CYCLOPHOSPHAMIDE. [Suspect]
     Active Substance: CYCLOPHOSPHAMIDE
     Indication: MEMBRANOUS-LIKE GLOMERULOPATHY WITH MASKED IGG-KAPPA DEPOSITS
     Dosage: UNK
     Route: 065
  3. METHYLPREDNISOLONE. [Suspect]
     Active Substance: METHYLPREDNISOLONE
     Indication: MEMBRANOUS-LIKE GLOMERULOPATHY WITH MASKED IGG-KAPPA DEPOSITS
     Dosage: UNK
     Route: 065

REACTIONS (10)
  - Brain abscess [Fatal]
  - Pulmonary nocardiosis [Fatal]
  - Hypoxia [Fatal]
  - Nocardiosis [Fatal]
  - Dyspnoea [Fatal]
  - Muscle abscess [Fatal]
  - Fatigue [Fatal]
  - Subcutaneous abscess [Fatal]
  - Death [Fatal]
  - Productive cough [Fatal]
